FAERS Safety Report 5054105-5 (Version None)
Quarter: 2006Q3

REPORT INFORMATION
  Report Type: 
  Country: None (occurrence: None)
  Receive Date: 20060713
  Receipt Date: 20060629
  Transmission Date: 20061208
  Serious: Yes (Death)
  Sender: FDA-Public Use
  Company Number: 2006JP001418

PATIENT
  Age: 69 Year
  Sex: Female

DRUGS (8)
  1. TACROLIMUS CAPSULES(TACROLIMUS CAPSULES)(TACROLIMUS) CAPSULE [Suspect]
     Indication: RHEUMATOID ARTHRITIS
     Dosage: 1 MG, ORAL
     Route: 048
     Dates: start: 20060407, end: 20060417
  2. METHOTREXATE [Suspect]
     Indication: RHEUMATOID ARTHRITIS
  3. PREDNISOLONE [Suspect]
     Indication: RHEUMATOID ARTHRITIS
     Dosage: 5 MG, ORAL
     Route: 048
  4. MOBIC (MELOXICAM) PER ORAL NOS [Concomitant]
  5. MUCOSTA (REBAMIPIDE) PER ORAL NOS [Concomitant]
  6. ONEALFA (ALFACALCIDOL) PER ORAL NOS [Concomitant]
  7. PANALDINE (TICLOPIDINE HYDROCHLORIDE) PER ORAL NOS [Concomitant]
  8. BAYASPIRIN PER ORAL NOS [Concomitant]

REACTIONS (1)
  - SEPSIS [None]
